FAERS Safety Report 5411825-8 (Version None)
Quarter: 2007Q3

REPORT INFORMATION
  Report Type: 
  Country: None (occurrence: None)
  Receive Date: 20070713
  Receipt Date: 20070320
  Transmission Date: 20080115
  Serious: No
  Sender: FDA-Public Use
  Company Number: 2007SP001001

PATIENT
  Age: 65 Year
  Sex: Female
  Weight: 79.3795 kg

DRUGS (3)
  1. LUNESTA [Suspect]
     Indication: INSOMNIA
     Dosage: 2 MG;ORAL
     Route: 048
     Dates: start: 20070220, end: 20070223
  2. CADUET [Concomitant]
  3. MOBIC [Concomitant]

REACTIONS (3)
  - HEADACHE [None]
  - MIDDLE INSOMNIA [None]
  - NAUSEA [None]
